APPROVED DRUG PRODUCT: METHOTREXATE SODIUM
Active Ingredient: METHOTREXATE SODIUM
Strength: EQ 2.5MG BASE
Dosage Form/Route: TABLET;ORAL
Application: A209787 | Product #001
Applicant: LOTUS PHARMACEUTICAL CO LTD NANTOU PLANT
Approved: Apr 23, 2021 | RLD: No | RS: No | Type: DISCN